FAERS Safety Report 9013496 (Version 2)
Quarter: 2013Q4

REPORT INFORMATION
  Report Type: Spontaneous
  Country: US (occurrence: US)
  Receive Date: 20130115
  Receipt Date: 20131008
  Transmission Date: 20140711
  Serious: Yes (Hospitalization, Other)
  Sender: FDA-Public Use
  Company Number: US-BAYER-2013-003891

PATIENT
  Age: 36 Year
  Sex: Female
  Weight: 120.18 kg

DRUGS (20)
  1. YASMIN [Suspect]
     Indication: CONTRACEPTION
  2. FAMOTIDINE [Concomitant]
     Dosage: 40 MG, BID
     Route: 048
  3. LORAZEPAM [Concomitant]
     Indication: PHOBIA OF FLYING
     Dosage: 0.5 MG, QD AS NEEDED
     Route: 048
  4. LORAZEPAM [Concomitant]
     Indication: INSOMNIA
     Dosage: 1 TO 2 TABLETS, EVERY NIGHT HS
     Route: 048
  5. ZOLOFT [Concomitant]
     Indication: ANXIETY DISORDER
     Dosage: 100 MG, QD
     Route: 048
  6. ACYCLOVIR [ACICLOVIR] [Concomitant]
     Indication: ORAL HERPES
     Dosage: 800 MG, ? TABLET 3 TIMES A DAY PRN
     Route: 048
  7. CEFTRIAXONE [Concomitant]
     Dosage: UNK UNK, ONCE
     Dates: start: 20091211
  8. KEFLEX [Concomitant]
     Route: 048
  9. XANAX [Concomitant]
     Indication: ANXIETY
  10. QVAR [Concomitant]
     Indication: WHEEZING
  11. ADVAIR [Concomitant]
     Indication: WHEEZING
  12. NASAREL [Concomitant]
     Dosage: 29 MCG SPRAY; 2 SPRAYS IN EACH NOSTRIL TWICE DAILY
     Route: 045
  13. SCOPOLAMINE [Concomitant]
     Dosage: 1.5 MG, EVERY 3 DAYS PRN
     Route: 062
  14. PROMETHAZINE W/CODEINE [Concomitant]
     Dosage: 1 TO 2 TEASPOONFULS EVERY 4 TO 6 HOURS
     Route: 048
  15. DAYQUIL [DEXTROMET HBR,GUAIF,PARACET,PSEUDOEPH HCL] [Concomitant]
  16. PROMETHAZINE HCL W/PHENYLEPH.HCL/CODE.PHOS. [Concomitant]
     Indication: COUGH
     Dosage: 1-2 TABLESPOON EVERY 4-6 HOURS AS NEEDED
     Route: 048
     Dates: start: 20091105
  17. ACETAMINOPHEN + COD. PHOSP. [Concomitant]
     Indication: PAIN
     Dosage: 300-30 MG, 1 TABLET EVERY 4 HOURS NEEDED
     Route: 048
     Dates: start: 20100604
  18. FLUTICASONE [Concomitant]
     Dosage: 50 ?G, INHALE 2 SPRAYS IN EACH NOSTRILS DAILY
     Route: 045
     Dates: start: 20100604
  19. ALBUTEROL [Concomitant]
     Indication: DYSPNOEA
     Dosage: 90 ?G, INHALE 2 PUFFS EVERY 6 HOURS AS NEEDED
     Route: 048
     Dates: start: 20100604
  20. ALBUTEROL [Concomitant]
     Indication: WHEEZING

REACTIONS (2)
  - Pulmonary embolism [None]
  - Deep vein thrombosis [None]
